FAERS Safety Report 7793375-7 (Version None)
Quarter: 2011Q3

REPORT INFORMATION
  Report Type: 
  Country: None (occurrence: None)
  Receive Date: 20110930
  Receipt Date: 20110930
  Transmission Date: 20111222
  Serious: No
  Sender: FDA-Public Use
  Company Number: None

PATIENT
  Sex: Male
  Weight: 78.0187 kg

DRUGS (1)
  1. TRIAMCINOLONE ACETONIDE [Suspect]
     Indication: MULTIPLE ALLERGIES
     Dosage: 2 SPRAYS ONCE DAILY TO (B) NARES
     Route: 045
     Dates: start: 20110901

REACTIONS (2)
  - HEADACHE [None]
  - PRODUCT SUBSTITUTION ISSUE [None]
